FAERS Safety Report 7341173-0 (Version None)
Quarter: 2011Q1

REPORT INFORMATION
  Report Type: 
  Country: None (occurrence: None)
  Receive Date: 20110309
  Receipt Date: 20110301
  Transmission Date: 20110831
  Serious: Yes (Disabling)
  Sender: FDA-Public Use
  Company Number: B0702088A

PATIENT
  Sex: Female

DRUGS (6)
  1. PERIACTIN [Concomitant]
     Dosage: 4MG PER DAY
     Route: 048
     Dates: start: 20110214, end: 20110221
  2. ASVERIN [Concomitant]
     Indication: COUGH
     Dosage: 60MG PER DAY
     Route: 048
     Dates: start: 20110214, end: 20110221
  3. CHINESE MEDICINE [Concomitant]
     Dosage: 4.98G PER DAY
     Route: 048
     Dates: start: 20110214, end: 20110215
  4. CEFZON [Concomitant]
     Dosage: 3G PER DAY
     Route: 048
     Dates: start: 20110214, end: 20110215
  5. MUCODYNE [Concomitant]
     Indication: PRODUCTIVE COUGH
     Dosage: 600MG PER DAY
     Route: 048
     Dates: start: 20110214, end: 20110221
  6. RELENZA [Suspect]
     Indication: INFLUENZA
     Dosage: 20MG PER DAY
     Route: 048
     Dates: start: 20110215, end: 20110220

REACTIONS (2)
  - INCORRECT ROUTE OF DRUG ADMINISTRATION [None]
  - APHASIA [None]
